FAERS Safety Report 9482091 (Version 2)
Quarter: 2013Q4

REPORT INFORMATION
  Report Type: Spontaneous
  Country: FR (occurrence: FR)
  Receive Date: 20130828
  Receipt Date: 20131110
  Transmission Date: 20140711
  Serious: Yes (Death, Hospitalization, Other)
  Sender: FDA-Public Use
  Company Number: PHHY2013FR091920

PATIENT
  Age: 86 Year
  Sex: Female

DRUGS (7)
  1. TASIGNA [Suspect]
     Indication: CHRONIC MYELOID LEUKAEMIA
     Dosage: 300 MG, QD
     Route: 048
     Dates: start: 20100913, end: 20130710
  2. TASIGNA [Suspect]
     Dosage: 300 MG, QD
     Route: 048
     Dates: start: 20130801, end: 20130810
  3. TEMERIT [Concomitant]
     Dosage: 0.5 DF, QD
     Route: 048
     Dates: start: 20130810
  4. PREVISCAN [Concomitant]
     Dosage: UNK UKN, UNK
     Route: 048
     Dates: start: 20130810
  5. KARDEGIC [Concomitant]
     Dosage: 75 MG, QD
     Route: 048
     Dates: start: 20130810
  6. CRESTOR [Concomitant]
     Dosage: 1 DF, QD
     Route: 048
     Dates: start: 20130810
  7. LEVOTHYROX [Concomitant]
     Dosage: 75 UG, QD
     Route: 048
     Dates: start: 20130810

REACTIONS (9)
  - Pancreatitis acute [Fatal]
  - Abdominal pain [Fatal]
  - Malaise [Fatal]
  - Intestinal infarction [Fatal]
  - Ischaemia [Not Recovered/Not Resolved]
  - Atrial fibrillation [Unknown]
  - Sepsis [Unknown]
  - Fatigue [Recovered/Resolved]
  - Loss of consciousness [Unknown]
